FAERS Safety Report 26182071 (Version 1)
Quarter: 2025Q4

REPORT INFORMATION
  Report Type: Spontaneous
  Country: US (occurrence: US)
  Receive Date: 20251221
  Receipt Date: 20251221
  Transmission Date: 20260118
  Serious: No
  Sender: ABBVIE
  Company Number: US-ABBVIE-6598519

PATIENT
  Sex: Male
  Weight: 77.11 kg

DRUGS (14)
  1. HUMIRA [Suspect]
     Active Substance: ADALIMUMAB
     Indication: Product used for unknown indication
     Route: 058
  2. TADALAFIL [Concomitant]
     Active Substance: TADALAFIL
     Indication: Nerve injury
  3. IBUPROFEN [Concomitant]
     Active Substance: IBUPROFEN
     Indication: Pain
  4. METRONIDAZOLE [Concomitant]
     Active Substance: METRONIDAZOLE
     Indication: Rosacea
  5. LEVOTHYROXINE [Concomitant]
     Active Substance: LEVOTHYROXINE
     Indication: Hypothyroidism
  6. ROSUVASTATIN [Concomitant]
     Active Substance: ROSUVASTATIN
     Indication: Blood cholesterol
  7. GABAPENTIN [Concomitant]
     Active Substance: GABAPENTIN
     Indication: Nervous system disorder
  8. VOLTAREN [Concomitant]
     Active Substance: DICLOFENAC SODIUM
     Indication: Neck pain
  9. METHOCARBAMOL [Concomitant]
     Active Substance: METHOCARBAMOL
     Indication: Muscle spasms
  10. VITAMIN D [Concomitant]
     Active Substance: VITAMIN D NOS
     Indication: Inflammatory bowel disease
  11. TAMSULOSIN [Concomitant]
     Active Substance: TAMSULOSIN
     Indication: Nerve injury
  12. ASPIRIN [Concomitant]
     Active Substance: ASPIRIN
     Indication: Thrombosis prophylaxis
  13. OMEPRAZOLE [Concomitant]
     Active Substance: OMEPRAZOLE
     Indication: Gastrooesophageal reflux disease
  14. RYBELSUS [Concomitant]
     Active Substance: SEMAGLUTIDE
     Indication: Diabetes mellitus

REACTIONS (2)
  - Drug hypersensitivity [Unknown]
  - Rash [Unknown]
